FAERS Safety Report 7418046-8 (Version None)
Quarter: 2011Q2

REPORT INFORMATION
  Report Type: 
  Country: None (occurrence: None)
  Receive Date: 20110415
  Receipt Date: 20110408
  Transmission Date: 20111010
  Serious: Yes (Other)
  Sender: FDA-Public Use
  Company Number: AU-ROCHE-770740

PATIENT
  Sex: Female

DRUGS (12)
  1. ACTEMRA [Suspect]
     Indication: RHEUMATOID ARTHRITIS
     Route: 065
     Dates: start: 20110207
  2. COVERSYL [Concomitant]
  3. LIPITOR [Concomitant]
  4. FOLIC ACID [Concomitant]
  5. NEXIUM [Concomitant]
  6. CODALGIN [Concomitant]
  7. OSTEOVIT [Concomitant]
  8. METHOTREXATE [Concomitant]
  9. PREDNISOLONE [Concomitant]
  10. CARTIA XT [Concomitant]
  11. ENDEP [Concomitant]
  12. TEMAZE [Concomitant]

REACTIONS (3)
  - DIARRHOEA [None]
  - ABDOMINAL PAIN LOWER [None]
  - FACE OEDEMA [None]
